FAERS Safety Report 20127646 (Version 1)
Quarter: 2021Q4

REPORT INFORMATION
  Report Type: Spontaneous
  Country: US (occurrence: None)
  Receive Date: 20211129
  Receipt Date: 20211129
  Transmission Date: 20220303
  Serious: Yes (Other)
  Sender: FDA-Public Use
  Company Number: None

PATIENT
  Age: 73 Year
  Sex: Male
  Weight: 72 kg

DRUGS (1)
  1. DUPIXENT [Suspect]
     Active Substance: DUPILUMAB
     Indication: Dermatitis atopic
     Dosage: OTHER FREQUENCY : EVERY 2 WEEKS;?
     Route: 058
     Dates: start: 20211029, end: 20211112

REACTIONS (6)
  - Arthralgia [None]
  - Arthralgia [None]
  - Arthralgia [None]
  - Arthralgia [None]
  - Arthralgia [None]
  - Pain in jaw [None]

NARRATIVE: CASE EVENT DATE: 20211112
